FAERS Safety Report 8189930-5 (Version None)
Quarter: 2012Q1

REPORT INFORMATION
  Report Type: 
  Country: None (occurrence: None)
  Receive Date: 20120307
  Receipt Date: 20120301
  Transmission Date: 20120608
  Serious: Yes (Other)
  Sender: FDA-Public Use
  Company Number: DE-ASTELLAS-2012EU001640

PATIENT
  Sex: Female
  Weight: 86 kg

DRUGS (6)
  1. VESICARE [Suspect]
     Indication: HYPERTONIC BLADDER
  2. NEBIVOLOL HCL [Concomitant]
     Dosage: UNK
     Route: 065
  3. VESICARE [Suspect]
     Indication: INCONTINENCE
     Dosage: 5 MG, UID/QD
     Route: 048
     Dates: start: 20070918, end: 20120131
  4. DIOVAN HCT [Concomitant]
     Dosage: UNK
     Route: 065
  5. ASPIRIN [Concomitant]
     Dosage: UNK
     Route: 065
  6. VALSARTAN [Concomitant]
     Dosage: UNK
     Route: 065

REACTIONS (1)
  - GLAUCOMA [None]
